FAERS Safety Report 20986612 (Version 1)
Quarter: 2022Q2

REPORT INFORMATION
  Report Type: Report from Study
  Country: CH (occurrence: CH)
  Receive Date: 20220621
  Receipt Date: 20220621
  Transmission Date: 20220721
  Serious: Yes (Hospitalization)
  Sender: FDA-Public Use
  Company Number: CH-GLAXOSMITHKLINE-CH2022GSK093888

PATIENT

DRUGS (1)
  1. BELANTAMAB MAFODOTIN [Suspect]
     Active Substance: BELANTAMAB MAFODOTIN
     Indication: Plasma cell myeloma
     Dosage: 3.4 MG, Z (Q3 WEEKS)
     Route: 042

REACTIONS (6)
  - Confusional state [Unknown]
  - General physical health deterioration [Unknown]
  - Disease progression [Unknown]
  - Light chain analysis increased [Unknown]
  - Blood immunoglobulin G increased [Unknown]
  - Dehydration [Unknown]
